FAERS Safety Report 5471116-6 (Version None)
Quarter: 2007Q3

REPORT INFORMATION
  Report Type: 
  Country: None (occurrence: None)
  Receive Date: 20070925
  Receipt Date: 20070914
  Transmission Date: 20080115
  Serious: Yes (Hospitalization)
  Sender: FDA-Public Use
  Company Number: 2007BI019912

PATIENT
  Sex: Male

DRUGS (1)
  1. AVONEX [Suspect]
     Indication: MULTIPLE SCLEROSIS
     Dosage: IU
     Dates: start: 20010101, end: 20061022

REACTIONS (3)
  - DRUG EXPOSURE DURING PREGNANCY [None]
  - INFECTION [None]
  - MATERNAL CONDITION AFFECTING FOETUS [None]
